FAERS Safety Report 12290535 (Version 2)
Quarter: 2016Q2

REPORT INFORMATION
  Report Type: Spontaneous
  Country: FR (occurrence: FR)
  Receive Date: 20160421
  Receipt Date: 20160503
  Transmission Date: 20160815
  Serious: Yes (Hospitalization, Other)
  Sender: FDA-Public Use
  Company Number: FR-PFIZER INC-2016214938

PATIENT
  Age: 84 Year
  Sex: Female

DRUGS (9)
  1. NATISPRAY [Concomitant]
     Active Substance: NITROGLYCERIN
  2. KARDEGIC [Concomitant]
     Active Substance: ASPIRIN LYSINE
     Indication: MYOCARDIAL INFARCTION
     Dosage: 75 MG ONCE IN THE MORNING , ALTERNATE DAY
     Route: 048
  3. PLAVIX [Concomitant]
     Active Substance: CLOPIDOGREL BISULFATE
     Indication: MYOCARDIAL INFARCTION
     Dosage: 75 MG, 1X/DAY
     Route: 048
     Dates: end: 20151126
  4. PRAVASTATIN SODIUM. [Concomitant]
     Active Substance: PRAVASTATIN SODIUM
     Indication: MYOCARDIAL INFARCTION
     Dosage: 20 MG, 1X/DAY
     Route: 048
  5. DISCOTRINE [Concomitant]
     Active Substance: NITROGLYCERIN
     Indication: MYOCARDIAL INFARCTION
     Dosage: 15 MG, 1X/DAY
     Route: 003
  6. OMEPRAZOLE. [Concomitant]
     Active Substance: OMEPRAZOLE
     Dosage: 20 MG, 1X/DAY
     Route: 048
  7. NEURONTIN [Suspect]
     Active Substance: GABAPENTIN
     Indication: NEURALGIA
     Dosage: 100 MG, 2X/DAY
     Route: 048
     Dates: start: 20151112
  8. CORVASAL [Concomitant]
     Active Substance: LINSIDOMINE
     Indication: MYOCARDIAL INFARCTION
     Dosage: 4 MG, 3X/DAY
     Route: 048
  9. PROCORALAN [Concomitant]
     Active Substance: IVABRADINE
     Dosage: 5 MG, 2X/DAY
     Route: 048

REACTIONS (10)
  - Asthenia [Unknown]
  - Fall [Recovered/Resolved]
  - Visual impairment [Unknown]
  - Headache [Unknown]
  - Loss of consciousness [Recovered/Resolved]
  - Hyperhidrosis [Unknown]
  - Somnolence [Unknown]
  - Amnesia [Unknown]
  - Orthostatic hypotension [Recovered/Resolved]
  - Vomiting [Unknown]

NARRATIVE: CASE EVENT DATE: 20151126
